FAERS Safety Report 7817487-4 (Version None)
Quarter: 2011Q4

REPORT INFORMATION
  Report Type: 
  Country: None (occurrence: None)
  Receive Date: 20111017
  Receipt Date: 20111003
  Transmission Date: 20120403
  Serious: Yes (Hospitalization)
  Sender: FDA-Public Use
  Company Number: TW-JNJFOC-20111003219

PATIENT
  Age: 44 Year
  Sex: Female

DRUGS (7)
  1. BROMAZEPAM [Concomitant]
     Indication: PRODUCT USED FOR UNKNOWN INDICATION
     Route: 065
  2. OLANZAPINE [Interacting]
     Indication: SCHIZOPHRENIA
     Route: 048
  3. OLANZAPINE [Interacting]
     Route: 048
  4. ZOPICLONE [Concomitant]
     Indication: PRODUCT USED FOR UNKNOWN INDICATION
     Route: 065
  5. OLANZAPINE [Interacting]
     Route: 048
  6. HALOPERIDOL [Suspect]
     Indication: SCHIZOPHRENIA
     Route: 048
  7. LEVOTHYROXINE SODIUM [Concomitant]
     Indication: HYPOTHYROIDISM
     Route: 065

REACTIONS (2)
  - WHITE BLOOD CELL COUNT DECREASED [None]
  - DRUG INTERACTION [None]
